FAERS Safety Report 5423685-X (Version None)
Quarter: 2007Q3

REPORT INFORMATION
  Report Type: 
  Country: None (occurrence: None)
  Receive Date: 20070823
  Receipt Date: 20070817
  Transmission Date: 20080115
  Serious: Yes (Hospitalization)
  Sender: FDA-Public Use
  Company Number: B0484013A

PATIENT
  Age: 33 Year
  Sex: Male

DRUGS (5)
  1. AUGMENTIN '125' [Suspect]
     Indication: PHARYNGOLARYNGEAL PAIN
     Route: 048
     Dates: start: 20061212, end: 20061216
  2. ACETAMINOPHEN W/ PROPOXYPHENE HCL [Suspect]
     Indication: PHARYNGOLARYNGEAL PAIN
     Route: 048
     Dates: start: 20061212, end: 20061217
  3. IBUPROFEN [Suspect]
     Indication: PHARYNGOLARYNGEAL PAIN
     Route: 048
     Dates: start: 20061212, end: 20061217
  4. HUMALOG [Concomitant]
     Indication: DIABETES MELLITUS
  5. LANTUS [Concomitant]
     Indication: DIABETES MELLITUS

REACTIONS (5)
  - INFLAMMATION [None]
  - NO REACTION ON PREVIOUS EXPOSURE TO DRUG [None]
  - PHARYNGOLARYNGEAL PAIN [None]
  - PYREXIA [None]
  - TOXIC SKIN ERUPTION [None]
